FAERS Safety Report 19486375 (Version 1)
Quarter: 2021Q3

REPORT INFORMATION
  Report Type: Spontaneous
  Country: CN (occurrence: CN)
  Receive Date: 20210702
  Receipt Date: 20210702
  Transmission Date: 20211014
  Serious: Yes (Other)
  Sender: FDA-Public Use
  Company Number: CN-PFIZER INC-2021750119

PATIENT
  Age: 40 Year
  Sex: Male

DRUGS (4)
  1. IDARUBICIN [Concomitant]
     Active Substance: IDARUBICIN
     Dosage: 20 MG, 1X/DAY
  2. CYTARABINE. [Suspect]
     Active Substance: CYTARABINE
     Dosage: 100 MG, 2X/DAY (Q12H)
     Route: 041
     Dates: start: 2019
  3. CYTARABINE. [Suspect]
     Active Substance: CYTARABINE
     Indication: ACUTE MYELOID LEUKAEMIA
     Dosage: 100 MG, 2X/DAY (Q12H)
     Route: 041
     Dates: start: 2019
  4. CYTARABINE. [Suspect]
     Active Substance: CYTARABINE
     Indication: ACUTE MYELOID LEUKAEMIA
     Dosage: 3.0 G, 2X/DAY
     Route: 041
     Dates: start: 20190926

REACTIONS (1)
  - Corneal disorder [Recovered/Resolved]
